FAERS Safety Report 6558377-7 (Version None)
Quarter: 2010Q1

REPORT INFORMATION
  Report Type: 
  Country: None (occurrence: None)
  Receive Date: 20100129
  Receipt Date: 20100122
  Transmission Date: 20100710
  Serious: Yes (Other)
  Sender: FDA-Public Use
  Company Number: US-MYLANLABS-2010S1000171

PATIENT
  Sex: Female

DRUGS (7)
  1. DICYCLOMINE HYDROCHLORIDE [Suspect]
     Indication: IRRITABLE BOWEL SYNDROME
     Route: 048
  2. DICYCLOMINE HYDROCHLORIDE [Suspect]
     Indication: GASTROINTESTINAL INFECTION
     Route: 048
  3. DICYCLOMINE HYDROCHLORIDE [Suspect]
     Route: 048
  4. DICYCLOMINE HYDROCHLORIDE [Suspect]
     Route: 048
  5. DICYCLOMINE HYDROCHLORIDE [Suspect]
     Route: 048
     Dates: start: 20100101
  6. DICYCLOMINE HYDROCHLORIDE [Suspect]
     Route: 048
     Dates: start: 20100101
  7. METAMUCIL [Concomitant]

REACTIONS (1)
  - ANGIOEDEMA [None]
